FAERS Safety Report 14411518 (Version 4)
Quarter: 2018Q1

REPORT INFORMATION
  Report Type: Spontaneous
  Country: CA (occurrence: CA)
  Receive Date: 20180119
  Receipt Date: 20180327
  Transmission Date: 20180509
  Serious: Yes (Hospitalization)
  Sender: FDA-Public Use
  Company Number: CA-CELLTRION INC.-2016CA011082

PATIENT

DRUGS (15)
  1. INFLECTRA [Suspect]
     Active Substance: INFLIXIMAB-DYYB
     Dosage: 605 MG CYCLIC, EVERY 8 WEEKS
     Route: 042
     Dates: start: 20180113
  2. FLOMAX [Concomitant]
     Active Substance: TAMSULOSIN HYDROCHLORIDE
     Indication: MICTURITION DISORDER
     Dosage: UNK
  3. METFORMIN [Concomitant]
     Active Substance: METFORMIN HYDROCHLORIDE
     Indication: BLOOD GLUCOSE ABNORMAL
     Dosage: 500 MG, UNK
     Dates: start: 201512
  4. TYLENOL ARTHRITIS PAIN [Concomitant]
     Active Substance: ACETAMINOPHEN
     Indication: PAIN
     Dosage: UNK, AS NEEDED
  5. CORTISONE [Concomitant]
     Active Substance: CORTISONE\HYDROCORTISONE
     Dosage: UNK
  6. OXYCODONE [Concomitant]
     Active Substance: OXYCODONE
     Indication: ANALGESIC THERAPY
     Dosage: 1 DF, DAILY AT NIGHT
  7. INFLECTRA [Suspect]
     Active Substance: INFLIXIMAB-DYYB
     Dosage: UNK
     Route: 042
  8. FLEXERIL [Concomitant]
     Active Substance: CYCLOBENZAPRINE HYDROCHLORIDE
     Indication: HYPOTONIA
     Dosage: 10 MG, 1X/DAY
  9. INFLECTRA [Suspect]
     Active Substance: INFLIXIMAB-DYYB
     Dosage: 5 MG/KG (605 MG) CYCLIC, EVERY 8 WEEKS
     Route: 042
     Dates: start: 20180113
  10. XARELTO [Concomitant]
     Active Substance: RIVAROXABAN
     Indication: DEEP VEIN THROMBOSIS
     Dosage: 20 MG, 1X/DAY
     Dates: start: 2014
  11. ZOPICLONE [Concomitant]
     Active Substance: ZOPICLONE
     Indication: INSOMNIA
     Dosage: UNK, DAILY
  12. INFLECTRA [Suspect]
     Active Substance: INFLIXIMAB-DYYB
     Dosage: 400 MG, CYCLIC (EVERY 8 WEEKS)
     Route: 042
     Dates: start: 20160128, end: 20171118
  13. INFLECTRA [Suspect]
     Active Substance: INFLIXIMAB-DYYB
     Dosage: 400 MG, EVERY 0, 2, 6 WEEKS, THEN EVERY 8 WEEKS FOR 6 MONTHS
     Route: 042
  14. PANTOLOC [Concomitant]
     Active Substance: PANTOPRAZOLE SODIUM
     Indication: GASTROOESOPHAGEAL REFLUX DISEASE
     Dosage: 40 MG, 1X/DAY
  15. INFLECTRA [Suspect]
     Active Substance: INFLIXIMAB-DYYB
     Indication: ANKYLOSING SPONDYLITIS
     Dosage: 400 MG, EVERY 0, 2, 6 WEEKS, THEN EVERY 8 WEEKS FOR 6 MONTHS
     Route: 042
     Dates: start: 20160128

REACTIONS (13)
  - Dyspepsia [Unknown]
  - Oropharyngeal pain [Unknown]
  - Body temperature decreased [Unknown]
  - Eczema [Recovered/Resolved]
  - Cough [Recovered/Resolved]
  - Epistaxis [Not Recovered/Not Resolved]
  - Off label use [Unknown]
  - Neck pain [Not Recovered/Not Resolved]
  - Arthralgia [Not Recovered/Not Resolved]
  - Weight decreased [Unknown]
  - Musculoskeletal pain [Not Recovered/Not Resolved]
  - Melanocytic naevus [Unknown]
  - Motor dysfunction [Recovered/Resolved]

NARRATIVE: CASE EVENT DATE: 20160731
